FAERS Safety Report 10157701 (Version 3)
Quarter: 2014Q2

REPORT INFORMATION
  Report Type: Spontaneous
  Country: US (occurrence: US)
  Receive Date: 20140507
  Receipt Date: 20140612
  Transmission Date: 20141212
  Serious: Yes (Death, Hospitalization, Other)
  Sender: FDA-Public Use
  Company Number: US-JNJFOC-20140419664

PATIENT
  Age: 47 Year
  Sex: Male

DRUGS (3)
  1. DURAGESIC [Suspect]
     Indication: BACK PAIN
     Route: 062
     Dates: end: 2014
  2. DURAGESIC [Suspect]
     Indication: TEMPOROMANDIBULAR JOINT SYNDROME
     Route: 062
     Dates: end: 2014
  3. ERYTHROMYCIN [Interacting]
     Indication: PRODUCT USED FOR UNKNOWN INDICATION
     Route: 065

REACTIONS (12)
  - Toxicity to various agents [Fatal]
  - Myocardial infarction [Fatal]
  - Respiratory distress [Fatal]
  - Adverse event [Recovered/Resolved]
  - Malaise [Recovered/Resolved]
  - Overdose [Unknown]
  - Spinal column stenosis [Recovered/Resolved]
  - Vomiting [Recovered/Resolved]
  - Pyrexia [Recovered/Resolved]
  - Tremor [Recovered/Resolved]
  - Drug interaction [Recovered/Resolved]
  - Rash [Recovered/Resolved]
